FAERS Safety Report 7634170-9 (Version None)
Quarter: 2011Q3

REPORT INFORMATION
  Report Type: 
  Country: None (occurrence: None)
  Receive Date: 20110725
  Receipt Date: 20110715
  Transmission Date: 20111222
  Serious: Yes (Other)
  Sender: FDA-Public Use
  Company Number: CA-ASTRAZENECA-2011SE42580

PATIENT
  Age: 20582 Day
  Sex: Male

DRUGS (1)
  1. CRESTOR [Suspect]
     Indication: HYPERCHLORAEMIA
     Route: 048
     Dates: start: 20110624

REACTIONS (1)
  - HAEMATOCHEZIA [None]
